FAERS Safety Report 5024404-1 (Version None)
Quarter: 2006Q2

REPORT INFORMATION
  Report Type: 
  Country: None (occurrence: None)
  Receive Date: 20060613
  Receipt Date: 20060109
  Transmission Date: 20061013
  Serious: Yes (Hospitalization)
  Sender: FDA-Public Use
  Company Number: PHBS2006FR00672

PATIENT
  Age: 77 Year
  Sex: Male
  Weight: 92 kg

DRUGS (6)
  1. CIBADREX [Suspect]
     Dosage: HCTZ 10 / BENAZEPRIL 12.5 MG/DAY
     Route: 048
  2. AMARYL [Suspect]
     Route: 048
     Dates: end: 20051109
  3. MEDIATENSYL [Suspect]
     Dosage: 30 MG/DAY
     Route: 048
     Dates: end: 20051107
  4. SIMVASTATIN [Suspect]
     Route: 048
     Dates: end: 20051107
  5. ASPIRIN [Suspect]
     Dosage: 160 MG/DAY
     Route: 048
     Dates: end: 20051104
  6. LANTUS [Concomitant]
     Dosage: UNK, UNK
     Route: 058

REACTIONS (1)
  - CRYPTOGENIC ORGANIZING PNEUMONIA [None]
